FAERS Safety Report 12186711 (Version 3)
Quarter: 2016Q3

REPORT INFORMATION
  Report Type: Spontaneous
  Country: JP (occurrence: JP)
  Receive Date: 20160317
  Receipt Date: 20160907
  Transmission Date: 20161109
  Serious: Yes (Other)
  Sender: FDA-Public Use
  Company Number: JP-MYLANLABS-2016M1010977

PATIENT

DRUGS (3)
  1. CARBOPLATIN. [Suspect]
     Active Substance: CARBOPLATIN
     Indication: HEPATOBLASTOMA RECURRENT
     Dosage: SIOPEL4
     Route: 041
  2. DOXORUBICIN [Suspect]
     Active Substance: DOXORUBICIN
     Indication: HEPATOBLASTOMA RECURRENT
     Dosage: SIOPEL4
     Route: 041
  3. CISPLATIN. [Suspect]
     Active Substance: CISPLATIN
     Indication: HEPATOBLASTOMA RECURRENT
     Dosage: SIOPEL4
     Route: 041

REACTIONS (4)
  - Haematotoxicity [Recovering/Resolving]
  - Febrile neutropenia [Recovering/Resolving]
  - Pancreatitis acute [Recovering/Resolving]
  - Ototoxicity [Recovering/Resolving]
